FAERS Safety Report 21028196 (Version 4)
Quarter: 2022Q3

REPORT INFORMATION
  Report Type: Spontaneous
  Country: DE (occurrence: DE)
  Receive Date: 20220630
  Receipt Date: 20220901
  Transmission Date: 20221027
  Serious: Yes (Other)
  Sender: FDA-Public Use
  Company Number: DE-NOVARTISPH-NVSC2022DE146509

PATIENT
  Age: 67 Year
  Sex: Male
  Weight: 109 kg

DRUGS (12)
  1. DEXAMETHASONE [Suspect]
     Active Substance: DEXAMETHASONE
     Indication: Plasma cell myeloma
     Dosage: 20 MG
     Route: 065
     Dates: start: 20210705, end: 20211109
  2. DEXAMETHASONE [Suspect]
     Active Substance: DEXAMETHASONE
     Dosage: 20 MG
     Route: 065
     Dates: start: 20211004
  3. THALIDOMIDE [Suspect]
     Active Substance: THALIDOMIDE
     Indication: Plasma cell myeloma
     Dosage: 100 MG
     Route: 065
     Dates: start: 20210705, end: 20211121
  4. THALIDOMIDE [Suspect]
     Active Substance: THALIDOMIDE
     Dosage: 100 MG
     Route: 065
     Dates: start: 20211004
  5. THALIDOMIDE [Suspect]
     Active Substance: THALIDOMIDE
     Dosage: 100 MG
     Route: 065
     Dates: end: 20211011
  6. DARATUMUMAB [Suspect]
     Active Substance: DARATUMUMAB
     Indication: Plasma cell myeloma
     Dosage: 1800 MG
     Route: 065
     Dates: start: 20210927, end: 20211108
  7. DARATUMUMAB [Suspect]
     Active Substance: DARATUMUMAB
     Dosage: 1800 MG
     Route: 065
     Dates: end: 20211011
  8. VELCADE [Suspect]
     Active Substance: BORTEZOMIB
     Indication: Plasma cell myeloma
     Dosage: 1.2 MG
     Route: 065
     Dates: start: 20211004
  9. VELCADE [Suspect]
     Active Substance: BORTEZOMIB
     Dosage: 3 MG
     Route: 065
     Dates: start: 20210705, end: 20211104
  10. VELCADE [Suspect]
     Active Substance: BORTEZOMIB
     Dosage: 3 MG
     Route: 065
     Dates: end: 20211011
  11. GABAPENTIN BETA [Concomitant]
     Indication: Product used for unknown indication
     Dosage: 600 MG, QID (600MG- 800MG)
     Route: 048
     Dates: start: 20211004
  12. PREDNISOLONE [Concomitant]
     Active Substance: PREDNISOLONE
     Indication: Product used for unknown indication
     Dosage: UNK
     Route: 065
     Dates: start: 20210914, end: 20210929

REACTIONS (2)
  - Paraneoplastic thrombosis [Recovered/Resolved]
  - Polyneuropathy [Not Recovered/Not Resolved]

NARRATIVE: CASE EVENT DATE: 20211004
